FAERS Safety Report 6597808-3 (Version None)
Quarter: 2010Q1

REPORT INFORMATION
  Report Type: 
  Country: None (occurrence: None)
  Receive Date: 20100216
  Receipt Date: 20100202
  Transmission Date: 20100710
  Serious: Yes (Hospitalization, Other)
  Sender: FDA-Public Use
  Company Number: SPI201000002

PATIENT
  Age: 62 Year
  Sex: Female
  Weight: 102 kg

DRUGS (10)
  1. AMITIZA [Suspect]
     Indication: ABDOMINAL PAIN
     Dosage: 24 MCG, BID, ORAL
     Route: 048
     Dates: start: 20091201, end: 20100106
  2. AMITIZA [Suspect]
     Indication: CONSTIPATION
     Dosage: 24 MCG, BID, ORAL
     Route: 048
     Dates: start: 20091201, end: 20100106
  3. AMITIZA [Suspect]
     Indication: IRRITABLE BOWEL SYNDROME
     Dosage: 24 MCG, BID, ORAL
     Route: 048
     Dates: start: 20091201, end: 20100106
  4. TEGRETOL [Concomitant]
  5. BECLOFEN (BACLOFEN) [Concomitant]
  6. NEURONTIN [Concomitant]
  7. MIRALAX [Concomitant]
  8. ENEMAS [Concomitant]
  9. COLONIC LAVAGE (MACROGOL, POTASSIUM CHLORIDE, SODIUM BICARBONATE, SODI [Concomitant]
  10. KEFLEX [Concomitant]

REACTIONS (4)
  - DIVERTICULITIS [None]
  - DRUG EFFECT DECREASED [None]
  - HAEMORRHOIDS [None]
  - LOBAR PNEUMONIA [None]
